FAERS Safety Report 6473323-2 (Version None)
Quarter: 2009Q4

REPORT INFORMATION
  Report Type: 
  Country: None (occurrence: None)
  Receive Date: 20091204
  Receipt Date: 20080924
  Transmission Date: 20100525
  Serious: Yes (Hospitalization)
  Sender: FDA-Public Use
  Company Number: GB-ELI_LILLY_AND_COMPANY-GB200806004333

PATIENT
  Sex: Male

DRUGS (5)
  1. BYETTA [Suspect]
     Indication: TYPE 2 DIABETES MELLITUS
     Dosage: UNK, UNKNOWN
     Route: 058
     Dates: start: 20080109, end: 20080101
  2. BYETTA [Suspect]
     Dosage: 10 UG, UNKNOWN
     Route: 058
     Dates: start: 20080407, end: 20080615
  3. CLOPIDOGREL [Concomitant]
     Dosage: 75 MG, UNKNOWN
     Route: 048
  4. ATORVASTATIN [Concomitant]
     Dosage: 80 MG, UNKNOWN
     Route: 048
  5. RAMIPRIL [Concomitant]
     Dosage: 2.5 MG, UNKNOWN
     Route: 048

REACTIONS (3)
  - ACUTE CORONARY SYNDROME [None]
  - CHEST PAIN [None]
  - MYOCARDIAL INFARCTION [None]
